FAERS Safety Report 4293523-X (Version None)
Quarter: 2004Q1

REPORT INFORMATION
  Report Type: 
  Country: None (occurrence: None)
  Receive Date: 20040210
  Receipt Date: 20040130
  Transmission Date: 20041129
  Serious: Yes (Death, Hospitalization)
  Sender: FDA-Public Use
  Company Number: 04P-056-0249308-00

PATIENT
  Sex: Female

DRUGS (2)
  1. TARKA [Suspect]
     Dosage: PER ORAL
     Route: 048
  2. ACEBUTOLOL [Concomitant]

REACTIONS (1)
  - CARDIAC ARREST [None]
